FAERS Safety Report 12801938 (Version 4)
Quarter: 2017Q2

REPORT INFORMATION
  Report Type: Report from Study
  Country: DE (occurrence: DE)
  Receive Date: 20161003
  Receipt Date: 20170512
  Transmission Date: 20170830
  Serious: Yes (Death, Hospitalization)
  Sender: FDA-Public Use
  Company Number: DE-ROCHE-1837365

PATIENT
  Age: 74 Year
  Sex: Male
  Weight: 99 kg

DRUGS (1)
  1. ESBRIET [Suspect]
     Active Substance: PIRFENIDONE
     Indication: IDIOPATHIC PULMONARY FIBROSIS
     Route: 048
     Dates: start: 20140810, end: 20170426

REACTIONS (2)
  - Dyspnoea [Not Recovered/Not Resolved]
  - General physical health deterioration [Fatal]

NARRATIVE: CASE EVENT DATE: 20160924
